FAERS Safety Report 11795895 (Version 1)
Quarter: 2015Q4

REPORT INFORMATION
  Report Type: Report from Study
  Country: US (occurrence: US)
  Receive Date: 20151203
  Receipt Date: 20151203
  Transmission Date: 20160305
  Serious: Yes (Hospitalization)
  Sender: FDA-Public Use
  Company Number: US-ROCHE-1666909

PATIENT
  Age: 65 Year
  Sex: Male

DRUGS (3)
  1. CISPLATIN. [Suspect]
     Active Substance: CISPLATIN
     Indication: NON-SMALL CELL LUNG CANCER
     Dosage: OVER 60 MIN ON DAY 1
     Route: 042
     Dates: start: 20091204
  2. BEVACIZUMAB [Suspect]
     Active Substance: BEVACIZUMAB
     Indication: NON-SMALL CELL LUNG CANCER
     Dosage: OVER 30 TO 90 MIN ON DAY 1?AFTER 4 CYCLES: OVER 30-90 MIN ON DAY 1Q 3 WKS, FOR UP TO 1 YEAR.
     Route: 042
     Dates: start: 20091204
  3. PEMETREXED [Suspect]
     Active Substance: PEMETREXED
     Indication: NON-SMALL CELL LUNG CANCER
     Dosage: OVER 10 MIN ON DAY 1
     Route: 042
     Dates: start: 20091204

REACTIONS (10)
  - Blood creatinine increased [Unknown]
  - International normalised ratio increased [Unknown]
  - Brain natriuretic peptide increased [Unknown]
  - Pleural effusion [Unknown]
  - Atelectasis [Unknown]
  - Constipation [Unknown]
  - Cardiac failure [Recovering/Resolving]
  - Acute kidney injury [Unknown]
  - Dyspnoea [Unknown]
  - Chronic kidney disease [Unknown]

NARRATIVE: CASE EVENT DATE: 20091206
